FAERS Safety Report 18231238 (Version 2)
Quarter: 2020Q3

REPORT INFORMATION
  Report Type: Spontaneous
  Country: US (occurrence: US)
  Receive Date: 20200904
  Receipt Date: 20200922
  Transmission Date: 20201103
  Serious: No
  Sender: FDA-Public Use
  Company Number: US-KARYOPHARM-2020KPT000888

PATIENT

DRUGS (1)
  1. XPOVIO [Suspect]
     Active Substance: SELINEXOR
     Indication: PLASMA CELL MYELOMA

REACTIONS (3)
  - Hyperglycaemia [Unknown]
  - Hyponatraemia [Unknown]
  - Vision blurred [Unknown]

NARRATIVE: CASE EVENT DATE: 20200807
